FAERS Safety Report 25617457 (Version 1)
Quarter: 2025Q3

REPORT INFORMATION
  Report Type: Spontaneous
  Country: US (occurrence: None)
  Receive Date: 20250728
  Receipt Date: 20250728
  Transmission Date: 20251020
  Serious: Yes (Hospitalization)
  Sender: FDA-CTU
  Company Number: None

PATIENT
  Sex: Male

DRUGS (2)
  1. ADVATE [Suspect]
     Active Substance: ANTIHEMOPHILIC FACTOR, HUMAN RECOMBINANT
     Indication: Factor VIII deficiency
     Route: 042
     Dates: start: 20240928
  2. HEMLIBRA [Suspect]
     Active Substance: EMICIZUMAB-KXWH

REACTIONS (8)
  - Treatment noncompliance [None]
  - Product dose omission issue [None]
  - Treatment delayed [None]
  - Cerebral haemorrhage [None]
  - Haemarthrosis [None]
  - Eye haemorrhage [None]
  - Swelling [None]
  - Contusion [None]
